FAERS Safety Report 5007411-4 (Version None)
Quarter: 2006Q2

REPORT INFORMATION
  Report Type: 
  Country: None (occurrence: None)
  Receive Date: 20060517
  Receipt Date: 20060504
  Transmission Date: 20061013
  Serious: Yes (Disabling, Other)
  Sender: FDA-Public Use
  Company Number: 163-20785-06050190

PATIENT
  Age: 70 Year
  Sex: Female

DRUGS (1)
  1. THALOMID [Suspect]
     Indication: MYELOID LEUKAEMIA
     Dosage: 200 MG, DAILY, ORAL
     Route: 048
     Dates: start: 20060412

REACTIONS (5)
  - APHASIA [None]
  - DIFFICULTY IN WALKING [None]
  - LOSS OF CONSCIOUSNESS [None]
  - PAIN [None]
  - VISUAL ACUITY REDUCED [None]
